FAERS Safety Report 24185079 (Version 2)
Quarter: 2024Q3

REPORT INFORMATION
  Report Type: Spontaneous
  Country: US (occurrence: US)
  Receive Date: 20240807
  Receipt Date: 20240903
  Transmission Date: 20241016
  Serious: Yes (Other)
  Sender: BAYER
  Company Number: US-BAYER-2024A111685

PATIENT
  Age: 40 Year
  Sex: Female

DRUGS (1)
  1. MIRENA [Suspect]
     Active Substance: LEVONORGESTREL
     Indication: Contraception
     Dosage: 20?G/DAY
     Route: 015
     Dates: start: 20220510

REACTIONS (3)
  - Arthralgia [Not Recovered/Not Resolved]
  - Joint swelling [None]
  - Musculoskeletal discomfort [Not Recovered/Not Resolved]

NARRATIVE: CASE EVENT DATE: 20240701
